FAERS Safety Report 8087868-5 (Version None)
Quarter: 2012Q1

REPORT INFORMATION
  Report Type: 
  Country: None (occurrence: None)
  Receive Date: 20120128
  Receipt Date: 20110516
  Transmission Date: 20120608
  Serious: Yes (Other)
  Sender: FDA-Public Use
  Company Number: US-ABBOTT-11P-163-0723155-00

PATIENT
  Age: 59 Year
  Sex: Female

DRUGS (5)
  1. LEVOXYL [Concomitant]
     Indication: PRODUCT USED FOR UNKNOWN INDICATION
  2. WATER PILLS [Concomitant]
     Indication: PRODUCT USED FOR UNKNOWN INDICATION
  3. MESTINON [Concomitant]
     Indication: PARALYSIS
  4. HUMIRA [Suspect]
     Indication: RHEUMATOID ARTHRITIS
  5. PREMARIN [Concomitant]
     Indication: PRODUCT USED FOR UNKNOWN INDICATION

REACTIONS (2)
  - MUSCULOSKELETAL CHEST PAIN [None]
  - ANKLE FRACTURE [None]
